FAERS Safety Report 21453649 (Version 3)
Quarter: 2022Q4

REPORT INFORMATION
  Report Type: Spontaneous
  Country: US (occurrence: US)
  Receive Date: 20221013
  Receipt Date: 20221017
  Transmission Date: 20230112
  Serious: No
  Sender: FDA-Public Use
  Company Number: US-JNJFOC-20221016502

PATIENT
  Sex: Female

DRUGS (1)
  1. WOMENS ROGAINE UNSCENTED [Suspect]
     Active Substance: MINOXIDIL
     Indication: Alopecia
     Dosage: RECOMMENDED APPLICATION
     Route: 065
     Dates: start: 202204

REACTIONS (2)
  - Drug ineffective [Unknown]
  - Product lot number issue [Unknown]

NARRATIVE: CASE EVENT DATE: 20220101
